FAERS Safety Report 24114021 (Version 2)
Quarter: 2024Q3

REPORT INFORMATION
  Report Type: Report from Study
  Country: US (occurrence: US)
  Receive Date: 20240720
  Receipt Date: 20240826
  Transmission Date: 20241017
  Serious: Yes (Hospitalization)
  Sender: JAZZ
  Company Number: US-JAZZ-2022-US-029455

PATIENT
  Sex: Female

DRUGS (23)
  1. XYREM [Suspect]
     Active Substance: SODIUM OXYBATE
     Indication: Narcolepsy
     Dosage: 4.5 GRAM, BID
  2. XYREM [Suspect]
     Active Substance: SODIUM OXYBATE
     Indication: Cataplexy
  3. XYREM [Suspect]
     Active Substance: SODIUM OXYBATE
     Indication: Somnolence
  4. DIETARY SUPPLEMENT [Suspect]
     Active Substance: DIETARY SUPPLEMENT
     Indication: Product used for unknown indication
     Dosage: UNK
     Dates: start: 20230615
  5. AMANTADINE [Concomitant]
     Active Substance: AMANTADINE
     Dosage: UNK
     Dates: start: 20160104
  6. BIOTIN [Concomitant]
     Active Substance: BIOTIN
     Dosage: UNK
     Dates: start: 20160203
  7. CELECOXIB [Concomitant]
     Active Substance: CELECOXIB
     Dosage: UNK
     Dates: start: 20151221
  8. CYMBALTA [Concomitant]
     Active Substance: DULOXETINE HYDROCHLORIDE
     Dosage: UNK UNK, QD
     Dates: start: 20150630
  9. CYTOMEL [Concomitant]
     Active Substance: LIOTHYRONINE SODIUM
     Dosage: UNK
     Dates: start: 20160203
  10. ESTRADIOL [Concomitant]
     Active Substance: ESTRADIOL
     Dosage: UNK
     Dates: start: 20160104
  11. LOSARTAN POTASSIUM [Concomitant]
     Active Substance: LOSARTAN POTASSIUM
     Dosage: UNK
     Dates: start: 20160104
  12. LYRICA [Concomitant]
     Active Substance: PREGABALIN
     Dosage: UNK
     Dates: start: 20150803
  13. NEXIUM I.V. [Concomitant]
     Active Substance: ESOMEPRAZOLE SODIUM
     Dosage: UNK
     Dates: start: 20150630
  14. PROVIGIL [Concomitant]
     Active Substance: MODAFINIL
     Dosage: UNK
     Dates: start: 20200601
  15. HYDROXYCHLOROQUINE SULFATE [Concomitant]
     Active Substance: HYDROXYCHLOROQUINE SULFATE
     Dosage: UNK
     Dates: start: 20200601
  16. AJOVY [Concomitant]
     Active Substance: FREMANEZUMAB-VFRM
     Dosage: 225 MG/1.5 ML AUTOINJECT
     Dates: start: 20211201
  17. HYDROCHLOROTHIAZIDE\TRIAMTERENE [Concomitant]
     Active Substance: HYDROCHLOROTHIAZIDE\TRIAMTERENE
     Dosage: UNK
     Dates: start: 20210420
  18. BACLOFEN [Concomitant]
     Active Substance: BACLOFEN
     Dosage: UNK
     Dates: start: 20200420
  19. COUMADIN [Concomitant]
     Active Substance: WARFARIN SODIUM
     Dosage: UNK
     Dates: start: 20220817
  20. VALIUM [Concomitant]
     Active Substance: DIAZEPAM
     Dosage: UNK
     Dates: start: 20220817
  21. LINZESS [Concomitant]
     Active Substance: LINACLOTIDE
     Dosage: UNK
     Dates: start: 20230615
  22. CANNABIS SATIVA SUBSP. INDICA TOP [Concomitant]
     Active Substance: CANNABIS SATIVA SUBSP. INDICA TOP
  23. CLONAZEPAM [Concomitant]
     Active Substance: CLONAZEPAM
     Indication: Product used for unknown indication
     Dosage: UNK
     Dates: start: 20240701

REACTIONS (8)
  - Blood potassium decreased [Unknown]
  - Factor V Leiden mutation [Recovering/Resolving]
  - Sinus disorder [Recovered/Resolved]
  - Constipation [Unknown]
  - Bronchitis chronic [Unknown]
  - Snoring [Unknown]
  - Staphylococcal infection [Unknown]
  - COVID-19 [Unknown]

NARRATIVE: CASE EVENT DATE: 20190101
